FAERS Safety Report 10336691 (Version 2)
Quarter: 2014Q4

REPORT INFORMATION
  Report Type: Spontaneous
  Country: US (occurrence: US)
  Receive Date: 20140723
  Receipt Date: 20141010
  Transmission Date: 20150528
  Serious: Yes (Hospitalization)
  Sender: FDA-Public Use
  Company Number: US-BAYER-2014-109436

PATIENT
  Age: 19 Year
  Sex: Female
  Weight: 83.9 kg

DRUGS (1)
  1. YAZ [Suspect]
     Active Substance: DROSPIRENONE\ETHINYL ESTRADIOL
     Dosage: UNK
     Dates: start: 200703, end: 20070605

REACTIONS (6)
  - Emotional distress [None]
  - General physical health deterioration [None]
  - Pulmonary embolism [None]
  - Pain [None]
  - Anxiety [None]
  - Injury [None]

NARRATIVE: CASE EVENT DATE: 20070605
